FAERS Safety Report 22393648 (Version 1)
Quarter: 2023Q2

REPORT INFORMATION
  Report Type: Spontaneous
  Country: JP (occurrence: JP)
  Receive Date: 20230601
  Receipt Date: 20230601
  Transmission Date: 20230721
  Serious: Yes (Other)
  Sender: FDA-Public Use
  Company Number: JP-PFIZER INC-PV202300095160

PATIENT
  Age: 5 Decade
  Sex: Female

DRUGS (2)
  1. IBRANCE [Suspect]
     Active Substance: PALBOCICLIB
     Indication: Breast cancer
  2. DENOSUMAB [Concomitant]
     Active Substance: DENOSUMAB

REACTIONS (2)
  - Neutrophil count decreased [Recovered/Resolved]
  - Osteonecrosis of jaw [Unknown]
